FAERS Safety Report 8788891 (Version 1)
Quarter: 2012Q4

REPORT INFORMATION
  Report Type: Report from Study
  Country: US (occurrence: US)
  Receive Date: 20120914
  Receipt Date: 20120914
  Transmission Date: 20130627
  Serious: No
  Sender: FDA-Public Use
  Company Number: US-VERTEX PHARMACEUTICAL INC.-AE-2012-009429

PATIENT
  Sex: Male
  Weight: 81.6 kg

DRUGS (8)
  1. INCIVEK [Suspect]
     Indication: HEPATITIS C
     Route: 048
     Dates: start: 201206, end: 201206
  2. PEGASYS [Concomitant]
     Indication: HEPATITIS C
     Route: 058
     Dates: start: 201206, end: 201206
  3. RIBAPAK [Concomitant]
     Indication: HEPATITIS C
     Route: 048
     Dates: start: 201206, end: 201206
  4. XANAX [Concomitant]
     Route: 048
  5. METOPROLOL TARTARATE [Concomitant]
     Route: 048
  6. TRIAMTERENE-HCTZ [Concomitant]
     Route: 048
  7. ACIPHEX [Concomitant]
  8. CVS MILK THISTLE [Concomitant]

REACTIONS (4)
  - Influenza like illness [Unknown]
  - Pain [Unknown]
  - Hypersensitivity [Unknown]
  - Rash pruritic [Unknown]
